FAERS Safety Report 8852611 (Version 2)
Quarter: 2013Q1

REPORT INFORMATION
  Report Type: Spontaneous
  Country: DE (occurrence: DE)
  Receive Date: 20121022
  Receipt Date: 20130111
  Transmission Date: 20140127
  Serious: Yes (Hospitalization)
  Sender: FDA-Public Use
  Company Number: DE-ELI_LILLY_AND_COMPANY-DE201206007212

PATIENT
  Age: 67 Year
  Sex: Female
  Weight: 78 kg

DRUGS (14)
  1. BYDUREON [Suspect]
     Indication: TYPE 2 DIABETES MELLITUS
     Dosage: 2 MG, WEEKLY (1/W)
     Route: 058
     Dates: start: 201109, end: 201205
  2. DILZEM [Concomitant]
     Dosage: 120 MG, BID
  3. EUPHYLONG [Concomitant]
     Dosage: 250 MG, BID
  4. THYRONAJOD [Concomitant]
     Dosage: 125 DF, EACH MORNING
  5. PANTOZOL [Concomitant]
     Dosage: 120 MG, EACH MORNING
  6. RAMIPRIL [Concomitant]
     Dosage: UNK, BID
  7. ASPIRIN PROTECT [Concomitant]
     Dosage: 100 DF, EACH MORNING
  8. TOREM COR [Concomitant]
     Dosage: UNK, EACH MORNING
  9. SORTIS [Concomitant]
     Dosage: 20 MG, EACH EVENING
  10. METFORMIN [Concomitant]
     Dosage: UNK, BID
  11. FOSAMAX [Concomitant]
     Dosage: 70 MG, WEEKLY (1/W)
  12. DECORTIN [Concomitant]
     Dosage: 30 MG, EACH MORNING
  13. DECORTIN [Concomitant]
     Dosage: 15 MG, QD
  14. MYRRHINIL-INTEST [Concomitant]
     Indication: HOMEOPATHY
     Dosage: 3 DF, QID

REACTIONS (1)
  - Colitis ulcerative [Not Recovered/Not Resolved]
